FAERS Safety Report 15378069 (Version 1)
Quarter: 2018Q3

REPORT INFORMATION
  Report Type: Spontaneous
  Country: US (occurrence: US)
  Receive Date: 20180906
  Receipt Date: 20180906
  Transmission Date: 20181010
  Serious: No
  Sender: FDA-Public Use
  Company Number: None

PATIENT
  Age: 64 Year
  Sex: Male

DRUGS (1)
  1. HUMATROPE [Suspect]
     Active Substance: SOMATROPIN
     Dates: start: 201708, end: 201805

REACTIONS (4)
  - Loss of personal independence in daily activities [None]
  - Irritability [None]
  - Cardiac disorder [None]
  - Asthenia [None]

NARRATIVE: CASE EVENT DATE: 20180905
